FAERS Safety Report 25666339 (Version 1)
Quarter: 2025Q3

REPORT INFORMATION
  Report Type: Spontaneous
  Country: GB (occurrence: GB)
  Receive Date: 20250811
  Receipt Date: 20250811
  Transmission Date: 20251020
  Serious: Yes (Other)
  Sender: ESPERION THERAPEUTICS
  Company Number: None

PATIENT

DRUGS (2)
  1. BEMPEDOIC ACID [Suspect]
     Active Substance: BEMPEDOIC ACID
     Indication: Blood cholesterol
     Dosage: 180 MG, QD
     Route: 065
     Dates: start: 20250718, end: 20250731
  2. COLLAGEN [Concomitant]
     Active Substance: COLLAGEN
     Indication: Musculoskeletal discomfort
     Route: 065
     Dates: start: 20250625, end: 20250731

REACTIONS (1)
  - Rash pruritic [Recovering/Resolving]

NARRATIVE: CASE EVENT DATE: 20250722
